FAERS Safety Report 9593013 (Version 1)
Quarter: 2013Q4

REPORT INFORMATION
  Report Type: Spontaneous
  Country: KR (occurrence: KR)
  Receive Date: 20131004
  Receipt Date: 20131004
  Transmission Date: 20140711
  Serious: Yes (Other)
  Sender: FDA-Public Use
  Company Number: KR-DRAFT-US-2013-11816

PATIENT
  Age: 24 Year
  Sex: Male

DRUGS (5)
  1. BUSULFEX [Suspect]
     Indication: STEM CELL TRANSPLANT
     Dosage: UNK
  2. IFOSFAMIDE [Concomitant]
     Indication: CHEMOTHERAPY
     Dosage: UNK
  3. CARBOPLATIN [Concomitant]
     Indication: CHEMOTHERAPY
     Dosage: UNK
  4. ETOPOSIDE [Concomitant]
     Indication: CHEMOTHERAPY
     Dosage: UNK
  5. DEXAMETHASONE [Concomitant]
     Indication: CHEMOTHERAPY
     Dosage: UNK

REACTIONS (1)
  - Disease progression [Unknown]
